FAERS Safety Report 25063371 (Version 1)
Quarter: 2025Q1

REPORT INFORMATION
  Report Type: Spontaneous
  Country: CH (occurrence: CH)
  Receive Date: 20250311
  Receipt Date: 20250311
  Transmission Date: 20250409
  Serious: Yes (Death)
  Sender: AMGEN
  Company Number: CH-AMGEN-CHESP2025046280

PATIENT
  Age: 7 Year
  Sex: Male

DRUGS (4)
  1. BLINATUMOMAB [Suspect]
     Active Substance: BLINATUMOMAB
     Indication: B-cell type acute leukaemia
     Route: 065
  2. BUSULFAN [Concomitant]
     Active Substance: BUSULFAN
  3. THIOTEPA [Concomitant]
     Active Substance: THIOTEPA
  4. FLUDARABINE [Concomitant]
     Active Substance: FLUDARABINE PHOSPHATE

REACTIONS (1)
  - Acute lymphocytic leukaemia recurrent [Fatal]
